FAERS Safety Report 5901915-5 (Version None)
Quarter: 2008Q3

REPORT INFORMATION
  Report Type: 
  Country: None (occurrence: None)
  Receive Date: 20080925
  Receipt Date: 20080826
  Transmission Date: 20090109
  Serious: No
  Sender: FDA-Public Use
  Company Number: ADE# 08-138

PATIENT
  Age: 81 Year
  Sex: Female

DRUGS (3)
  1. METOPROLOL TARTRATE TABLETS, USP, 50 MG (OBLONG) [Suspect]
     Indication: MYOCARDIAL INFARCTION
     Dosage: 2 TABLETS DAILY
     Dates: start: 19960101
  2. ASPIRIN [Concomitant]
  3. BONINE [Concomitant]

REACTIONS (8)
  - ALOPECIA [None]
  - DIZZINESS [None]
  - FALL [None]
  - FATIGUE [None]
  - HEAD INJURY [None]
  - JOINT INJURY [None]
  - MEMORY IMPAIRMENT [None]
  - VERTIGO [None]
